FAERS Safety Report 6481738-1 (Version None)
Quarter: 2009Q4

REPORT INFORMATION
  Report Type: 
  Country: None (occurrence: None)
  Receive Date: 20091208
  Receipt Date: 20091203
  Transmission Date: 20100525
  Serious: Yes (Life-Threatening, Hospitalization)
  Sender: FDA-Public Use
  Company Number: US-GILEAD-2009-0025503

PATIENT
  Sex: Female
  Weight: 90.346 kg

DRUGS (10)
  1. LETAIRIS [Suspect]
     Indication: PULMONARY ARTERIAL HYPERTENSION
     Route: 048
  2. COZAAR [Concomitant]
  3. LEVOTHYROXINE SODIUM [Concomitant]
  4. METFORMIN HCL [Concomitant]
  5. XOPENEX [Concomitant]
  6. TRAMADOL HCL [Concomitant]
  7. DILTIAZEM [Concomitant]
  8. POTASSIUM CHLORIDE [Concomitant]
  9. MELOXICAM [Concomitant]
  10. PRILOSEC [Concomitant]

REACTIONS (1)
  - ACUTE MYOCARDIAL INFARCTION [None]
